FAERS Safety Report 9356557 (Version 2)
Quarter: 2013Q3

REPORT INFORMATION
  Report Type: Report from Study
  Country: DE (occurrence: DE)
  Receive Date: 20130619
  Receipt Date: 20130802
  Transmission Date: 20140515
  Serious: Yes (Hospitalization)
  Sender: FDA-Public Use
  Company Number: DE-ELI_LILLY_AND_COMPANY-DE201306002433

PATIENT
  Sex: Female
  Weight: 58.1 kg

DRUGS (6)
  1. TERIPARATIDE [Suspect]
     Indication: OSTEOPOROSIS
     Dosage: UNK, QD
     Route: 058
     Dates: start: 20130422
  2. ASS [Concomitant]
     Indication: CARDIAC DISORDER
  3. BISOPROLOL [Concomitant]
     Indication: CARDIAC DISORDER
  4. ENALAPRIL [Concomitant]
     Indication: CARDIAC DISORDER
  5. NORSPAN [Concomitant]
     Indication: PAIN
     Dosage: 10UG, UNK
     Route: 062
  6. DEKRISTOL [Concomitant]
     Dosage: UNK, WEEKLY

REACTIONS (7)
  - Arthralgia [Not Recovered/Not Resolved]
  - Myalgia [Not Recovered/Not Resolved]
  - Arthropathy [Not Recovered/Not Resolved]
  - Muscle tightness [Unknown]
  - Local swelling [Not Recovered/Not Resolved]
  - Micturition urgency [Unknown]
  - Back pain [Unknown]
